FAERS Safety Report 9512370 (Version 4)
Quarter: 2013Q4

REPORT INFORMATION
  Report Type: Spontaneous
  Country: US (occurrence: US)
  Receive Date: 20130910
  Receipt Date: 20131125
  Transmission Date: 20140711
  Serious: Yes (Death, Hospitalization, Other)
  Sender: FDA-Public Use
  Company Number: US-CELGENEUS-163-POMAL-13040270

PATIENT
  Age: 74 Year
  Sex: Female
  Weight: 56.43 kg

DRUGS (21)
  1. POMALYST [Suspect]
     Indication: PLASMA CELL MYELOMA
     Dosage: 4 MILLIGRAM
     Route: 048
     Dates: start: 20130308
  2. POMALYST [Suspect]
     Dosage: 3 MILLIGRAM
     Route: 048
     Dates: start: 20130401
  3. POMALYST [Suspect]
     Dosage: 2 MILLIGRAM
     Route: 048
     Dates: start: 201305
  4. POMALYST [Suspect]
     Dosage: 1 MILLIGRAM
     Route: 065
     Dates: start: 20130703, end: 20130821
  5. ACYCLOVIR [Concomitant]
     Indication: PRODUCT USED FOR UNKNOWN INDICATION
     Route: 065
  6. AMLODIPINE BESYLATE [Concomitant]
     Indication: HYPERTENSION
     Dosage: 5 MILLIGRAM
     Route: 048
  7. CALCIUM + VITAMIN D [Concomitant]
     Indication: PRODUCT USED FOR UNKNOWN INDICATION
     Dosage: 500MG / 200UNITS
     Route: 048
  8. METOCLOPRAMIDE HCL [Concomitant]
     Indication: PRODUCT USED FOR UNKNOWN INDICATION
     Route: 065
  9. METRONIDAZOLE [Concomitant]
     Indication: PRODUCT USED FOR UNKNOWN INDICATION
     Route: 065
  10. LEVAQUIN [Concomitant]
     Indication: PRODUCT USED FOR UNKNOWN INDICATION
     Route: 065
  11. RED BLOOD CELLS [Concomitant]
     Indication: TRANSFUSION
     Dosage: 2 UNITS
     Route: 041
     Dates: start: 20131003, end: 20131003
  12. WARFARIN [Concomitant]
     Indication: DEEP VEIN THROMBOSIS
     Dosage: 3 MILLIGRAM
     Route: 048
  13. WARFARIN [Concomitant]
     Indication: HYPERCOAGULATION
     Dosage: 2 MILLIGRAM
     Route: 048
  14. GABAPENTIN [Concomitant]
     Indication: NEUROPATHY PERIPHERAL
     Dosage: 300 MILLIGRAM
     Route: 048
  15. GABAPENTIN [Concomitant]
     Dosage: 200 MILLIGRAM
     Route: 048
  16. SIMVASTATIN [Concomitant]
     Indication: HYPERCHOLESTEROLAEMIA
     Dosage: 20 MILLIGRAM
     Route: 048
  17. OXYCODONE [Concomitant]
     Indication: PAIN
     Dosage: 5-10MG
     Route: 065
  18. OMEPRAZOLE [Concomitant]
     Indication: PRODUCT USED FOR UNKNOWN INDICATION
     Dosage: 20 MILLIGRAM
     Route: 065
  19. POTASSIUM CHLORIDE [Concomitant]
     Indication: PRODUCT USED FOR UNKNOWN INDICATION
     Dosage: 10 MILLIEQUIVALENTS
     Route: 065
  20. SENOKOT S [Concomitant]
     Indication: CONSTIPATION
     Dosage: 1-2
     Route: 065
  21. BISPHOSPHONATES [Concomitant]
     Indication: PRODUCT USED FOR UNKNOWN INDICATION
     Route: 065

REACTIONS (3)
  - Death [Fatal]
  - Neutropenia [Unknown]
  - Plasma cell myeloma [Not Recovered/Not Resolved]
